FAERS Safety Report 9807384 (Version 1)
Quarter: 2014Q1

REPORT INFORMATION
  Report Type: Spontaneous
  Country: IL (occurrence: IL)
  Receive Date: 20140110
  Receipt Date: 20140110
  Transmission Date: 20141002
  Serious: Yes (Other)
  Sender: FDA-Public Use
  Company Number: IL-AMGEN-ISRSP2014001509

PATIENT
  Age: 50 Year
  Sex: Male

DRUGS (8)
  1. ENBREL [Suspect]
     Indication: RHEUMATOID ARTHRITIS
     Dosage: 50 MG, UNK
     Route: 065
     Dates: start: 201208
  2. MICROPIRIN [Concomitant]
     Dosage: UNK
  3. NORMALOL [Concomitant]
     Dosage: UNK
  4. SPIRONOLACTONE [Concomitant]
     Dosage: UNK
  5. RAMITENS [Concomitant]
     Dosage: 1.25 MG, UNK
  6. LIPITOR [Concomitant]
     Dosage: 40 MG, UNK
  7. COUMADINE [Concomitant]
     Dosage: 1 MG, UNK
  8. PREDNISONE [Concomitant]
     Dosage: 5 MG, UNK

REACTIONS (1)
  - Myocardial infarction [Recovered/Resolved]
